FAERS Safety Report 4719637-5 (Version None)
Quarter: 2005Q3

REPORT INFORMATION
  Report Type: 
  Country: None (occurrence: None)
  Receive Date: 20050721
  Receipt Date: 20040430
  Transmission Date: 20060218
  Serious: Yes (Other)
  Sender: FDA-Public Use
  Company Number: US-GLAXOSMITHKLINE-A0510152A

PATIENT
  Sex: Male
  Weight: 129 kg

DRUGS (9)
  1. AVANDIA [Suspect]
     Dosage: 4MG PER DAY
     Route: 048
     Dates: start: 19991004, end: 20010320
  2. GLUCOVANCE [Concomitant]
     Dosage: 2.5MG TWICE PER DAY
     Route: 048
  3. LIPITOR [Concomitant]
     Dosage: 20MG PER DAY
     Route: 048
  4. HYZAAR [Concomitant]
     Route: 048
  5. LASIX [Concomitant]
  6. PLAVIX [Concomitant]
  7. K-DUR 10 [Concomitant]
  8. ZESTRIL [Concomitant]
  9. INSULIN [Concomitant]
     Indication: DRUG USE FOR UNKNOWN INDICATION
     Route: 042

REACTIONS (1)
  - CARDIAC FAILURE CONGESTIVE [None]
